FAERS Safety Report 10617468 (Version 1)
Quarter: 2014Q4

REPORT INFORMATION
  Report Type: Spontaneous
  Country: US (occurrence: US)
  Receive Date: 20141201
  Receipt Date: 20141201
  Transmission Date: 20150529
  Serious: Yes (Other)
  Sender: FDA-Public Use
  Company Number: PHHY2014US152472

PATIENT
  Sex: Female

DRUGS (2)
  1. MEXILETINE [Suspect]
     Active Substance: MEXILETINE
     Indication: CARDIOMYOPATHY
  2. MEXILETINE [Suspect]
     Active Substance: MEXILETINE
     Indication: VENTRICULAR TACHYCARDIA
     Route: 065

REACTIONS (6)
  - Swelling face [Recovering/Resolving]
  - Eosinophilia [Recovering/Resolving]
  - Lymphadenopathy [Recovering/Resolving]
  - Drug reaction with eosinophilia and systemic symptoms [Unknown]
  - Pyrexia [Recovering/Resolving]
  - Rash [Recovering/Resolving]
